FAERS Safety Report 5696208-8 (Version None)
Quarter: 2008Q2

REPORT INFORMATION
  Report Type: 
  Country: None (occurrence: None)
  Receive Date: 20080404
  Receipt Date: 20080404
  Transmission Date: 20081010
  Serious: Yes (Other)
  Sender: FDA-Public Use
  Company Number: None

PATIENT
  Age: 84 Year
  Sex: Male
  Weight: 75.7507 kg

DRUGS (7)
  1. LEVAQUIN [Suspect]
     Indication: URINARY TRACT INFECTION
     Dosage: 500MG DAILY PO
     Route: 048
     Dates: start: 20080223, end: 20080227
  2. VENLAFAXINE HCL [Concomitant]
  3. ALLOPURINOL [Concomitant]
  4. EPOGEN [Concomitant]
  5. ESOMEPRAZOLE [Concomitant]
  6. TERAZOCIN [Concomitant]
  7. OXYBUTYNIN CHLORIDE [Concomitant]

REACTIONS (1)
  - EPICONDYLITIS [None]
